FAERS Safety Report 14129013 (Version 1)
Quarter: 2017Q4

REPORT INFORMATION
  Report Type: Spontaneous
  Country: DE (occurrence: DE)
  Receive Date: 20171026
  Receipt Date: 20171026
  Transmission Date: 20180321
  Serious: Yes (Death, Other)
  Sender: FDA-Public Use
  Company Number: DE-PFIZER INC-2017462185

PATIENT
  Age: 36 Year
  Sex: Female

DRUGS (2)
  1. IBRANCE [Suspect]
     Active Substance: PALBOCICLIB
     Dosage: UNK
     Dates: start: 201701, end: 201709
  2. LETROZOLE. [Suspect]
     Active Substance: LETROZOLE
     Dosage: UNK
     Dates: start: 201701, end: 201709

REACTIONS (4)
  - Death [Fatal]
  - Neutropenia [Unknown]
  - Pneumocystis jirovecii infection [Unknown]
  - Neoplasm progression [Unknown]
